FAERS Safety Report 7381934-5 (Version None)
Quarter: 2011Q1

REPORT INFORMATION
  Report Type: 
  Country: None (occurrence: None)
  Receive Date: 20110329
  Receipt Date: 20101124
  Transmission Date: 20110831
  Serious: Yes (Other)
  Sender: FDA-Public Use
  Company Number: JP-BAYER-200914910BYL

PATIENT
  Sex: Male
  Weight: 67 kg

DRUGS (1)
  1. NEXAVAR [Suspect]
     Indication: HEPATIC NEOPLASM MALIGNANT
     Dosage: 800 MG, QD
     Route: 048
     Dates: start: 20091125, end: 20091128

REACTIONS (2)
  - PNEUMONIA MYCOPLASMAL [None]
  - ERYTHEMA MULTIFORME [None]
